FAERS Safety Report 7741270-1 (Version None)
Quarter: 2011Q3

REPORT INFORMATION
  Report Type: 
  Country: None (occurrence: None)
  Receive Date: 20110909
  Receipt Date: 20110830
  Transmission Date: 20111222
  Serious: Yes (Other)
  Sender: FDA-Public Use
  Company Number: GB-ALLERGAN-1111646US

PATIENT
  Age: 70 Year
  Sex: Male

DRUGS (3)
  1. CYCLOPHOSPHAMIDE [Concomitant]
     Indication: MULTIPLE MYELOMA
     Route: 048
  2. PREDNISOLONE [Suspect]
     Indication: MULTIPLE MYELOMA
     Dosage: UNK
     Route: 048
  3. DEXAMETHASONE [Concomitant]
     Dosage: 2 DF, QD
     Route: 061

REACTIONS (1)
  - MOLLUSCUM CONTAGIOSUM [None]
